FAERS Safety Report 7531536-2 (Version None)
Quarter: 2011Q2

REPORT INFORMATION
  Report Type: 
  Country: None (occurrence: None)
  Receive Date: 20110608
  Receipt Date: 20110524
  Transmission Date: 20111010
  Serious: No
  Sender: FDA-Public Use
  Company Number: GB-DENTSPLY-2011-0049-EUR

PATIENT
  Age: 25 Year
  Sex: Female

DRUGS (1)
  1. XYLOCAINE [Suspect]

REACTIONS (5)
  - OPHTHALMOPLEGIA [None]
  - PALLOR [None]
  - MYDRIASIS [None]
  - EYELID PTOSIS [None]
  - AMAUROSIS [None]
